FAERS Safety Report 14192478 (Version 1)
Quarter: 2017Q4

REPORT INFORMATION
  Report Type: Spontaneous
  Country: US (occurrence: US)
  Receive Date: 20171115
  Receipt Date: 20171115
  Transmission Date: 20180321
  Serious: No
  Sender: FDA-Public Use
  Company Number: US-ALLERGAN-2016-002401

PATIENT
  Age: 19 Year
  Sex: Female
  Weight: 82.99 kg

DRUGS (1)
  1. LO LOESTRIN FE [Suspect]
     Active Substance: ETHINYL ESTRADIOL\NORETHINDRONE ACETATE
     Indication: CONTRACEPTION
     Dosage: UNK, UNKNOWN
     Route: 048
     Dates: start: 201608

REACTIONS (3)
  - Dysmenorrhoea [Unknown]
  - Metrorrhagia [Recovered/Resolved]
  - Metrorrhagia [Not Recovered/Not Resolved]

NARRATIVE: CASE EVENT DATE: 201609
